FAERS Safety Report 6754824-6 (Version None)
Quarter: 2010Q2

REPORT INFORMATION
  Report Type: 
  Country: None (occurrence: None)
  Receive Date: 20100603
  Receipt Date: 20100527
  Transmission Date: 20101027
  Serious: Yes (Life-Threatening, Hospitalization)
  Sender: FDA-Public Use
  Company Number: FI-GENENTECH-302427

PATIENT
  Sex: Male

DRUGS (11)
  1. MABTHERA [Suspect]
     Dosage: FREQUENCY: 4 INFUSIONS BETWEEN MAY-SEP 2009
     Route: 042
     Dates: start: 20090501, end: 20090901
  2. BENDAMUSTINE [Concomitant]
     Dosage: FREQUENCY: 4 INFUSIONS BETWEEN MAY-SEP 2009
     Route: 042
     Dates: start: 20090501, end: 20090901
  3. EMCONCOR [Concomitant]
     Indication: HYPERTENSION
     Dosage: 2.5 MG, QAM
     Route: 048
  4. EMGESAN [Concomitant]
     Indication: MAGNESIUM DEFICIENCY
     Dosage: 250 MG, BID
     Route: 048
  5. DIGOXIN [Concomitant]
     Indication: ATRIAL FIBRILLATION
     Dosage: .125 MG, QAM
     Route: 048
  6. VALTREX [Concomitant]
     Indication: ANTIVIRAL PROPHYLAXIS
     Dosage: 500 MG, BID
     Route: 048
  7. AMARYL [Concomitant]
     Indication: TYPE 2 DIABETES MELLITUS
     Dosage: 2 MG, QAM
     Route: 048
  8. ALLOPURINOL [Concomitant]
     Indication: PROPHYLAXIS
     Dosage: DRUG REPORTED AS ALLONOL
     Route: 048
  9. PROSCAR [Concomitant]
     Dosage: 5 MG, QAM
     Route: 048
  10. SIMVASTATIN [Concomitant]
     Indication: HYPERLIPIDAEMIA
     Dosage: 20 MG, QAM
     Route: 048
  11. PRIMASPAN [Concomitant]
     Dosage: 50 MG, QAM
     Route: 048

REACTIONS (2)
  - PARALYSIS [None]
  - PROGRESSIVE MULTIFOCAL LEUKOENCEPHALOPATHY [None]
